FAERS Safety Report 9499927 (Version 2)
Quarter: 2013Q4

REPORT INFORMATION
  Report Type: Spontaneous
  Country: US (occurrence: US)
  Receive Date: 20130905
  Receipt Date: 20131023
  Transmission Date: 20140711
  Serious: No
  Sender: FDA-Public Use
  Company Number: US-PFIZER INC-2013249620

PATIENT
  Age: 35 Year
  Sex: Female
  Weight: 53.06 kg

DRUGS (2)
  1. ELELYSO [Suspect]
     Indication: GAUCHER^S DISEASE
     Dosage: 4000 UNITS, EVERY 2 WEEKS
     Route: 042
     Dates: start: 20120625
  2. TOPAMAX [Suspect]
     Indication: MIGRAINE
     Dosage: UNK

REACTIONS (3)
  - Weight decreased [Unknown]
  - Migraine [Unknown]
  - Alopecia [Unknown]
